FAERS Safety Report 20020693 (Version 2)
Quarter: 2021Q4

REPORT INFORMATION
  Report Type: Spontaneous
  Country: JP (occurrence: JP)
  Receive Date: 20211101
  Receipt Date: 20211215
  Transmission Date: 20220303
  Serious: Yes (Death)
  Sender: FDA-Public Use
  Company Number: JP-EAGLE PHARMACEUTICALS, INC.-JP-2021EAG000235

PATIENT
  Age: 70 Year
  Sex: Female

DRUGS (11)
  1. BENDAMUSTINE HYDROCHLORIDE [Suspect]
     Active Substance: BENDAMUSTINE HYDROCHLORIDE
     Dosage: 120 MG/M2, (CYCLE 1 BR THERAPY)
     Route: 041
  2. BENDAMUSTINE HYDROCHLORIDE [Suspect]
     Active Substance: BENDAMUSTINE HYDROCHLORIDE
     Dosage: 120 MG/M2, (CYCLE 2 BR THERAPY)
     Route: 041
  3. BENDAMUSTINE HYDROCHLORIDE [Suspect]
     Active Substance: BENDAMUSTINE HYDROCHLORIDE
     Dosage: 120 MG/M2, (CYCLE 3 BR THERAPY)
     Route: 041
  4. BENDAMUSTINE HYDROCHLORIDE [Suspect]
     Active Substance: BENDAMUSTINE HYDROCHLORIDE
     Dosage: 120 MG/M2, (CYCLE 4 BR THERAPY)
     Route: 041
  5. RITUXAN [Concomitant]
     Active Substance: RITUXIMAB
     Indication: Diffuse large B-cell lymphoma
     Dosage: UNK (CYCLE 1 BR THERAPY)
     Route: 041
  6. RITUXAN [Concomitant]
     Active Substance: RITUXIMAB
     Dosage: UNK (CYCLE 2 BR THERAPY)
     Route: 041
  7. RITUXAN [Concomitant]
     Active Substance: RITUXIMAB
     Dosage: UNK (CYCLE 3 BR THERAPY)
     Route: 041
  8. RITUXAN [Concomitant]
     Active Substance: RITUXIMAB
     Dosage: UNK (CYCLE 4 BR THERAPY)
     Route: 041
  9. RITUXAN [Concomitant]
     Active Substance: RITUXIMAB
     Dosage: UNK (CYCLE 1 PBR THERAPY)
     Route: 041
  10. PEGFILGRASTIM [Concomitant]
     Active Substance: PEGFILGRASTIM
     Indication: Prophylaxis
     Dosage: UNK (WITH CYCLE 1 BR THERAPY)
     Route: 065
  11. RADIATION THERAPY [Concomitant]
     Active Substance: RADIATION THERAPY
     Indication: Diffuse large B-cell lymphoma recurrent
     Dosage: 20 GY/FR
     Route: 065

REACTIONS (3)
  - Disease progression [Fatal]
  - Hypogammaglobulinaemia [Unknown]
  - Pyrexia [Unknown]
